FAERS Safety Report 8528884-6 (Version None)
Quarter: 2012Q3

REPORT INFORMATION
  Report Type: 
  Country: None (occurrence: None)
  Receive Date: 20120716
  Receipt Date: 20120716
  Transmission Date: 20120928
  Serious: Yes (Other)
  Sender: FDA-Public Use
  Company Number: None

PATIENT
  Sex: Female
  Weight: 115 kg

DRUGS (1)
  1. OFIRMEV [Suspect]
     Indication: PAIN
     Dosage: 10 MG/ML 1000 MG Q8HRS IV
     Route: 042
     Dates: start: 20120625

REACTIONS (1)
  - DYSACUSIS [None]
